FAERS Safety Report 24609352 (Version 1)
Quarter: 2024Q4

REPORT INFORMATION
  Report Type: Report from Study
  Country: CN (occurrence: CN)
  Receive Date: 20241112
  Receipt Date: 20241112
  Transmission Date: 20250115
  Serious: Yes (Hospitalization)
  Sender: JOHNSON AND JOHNSON
  Company Number: CN-JNJFOC-20241114895

PATIENT
  Age: 71 Year
  Sex: Male
  Weight: 62 kg

DRUGS (25)
  1. ABIRATERONE ACETATE [Suspect]
     Active Substance: ABIRATERONE ACETATE
     Indication: Prostate cancer metastatic
     Route: 048
     Dates: start: 20200330, end: 20200422
  2. PRUXELUTAMIDE [Suspect]
     Active Substance: PRUXELUTAMIDE
     Indication: Prostate cancer metastatic
     Route: 048
     Dates: start: 20200330, end: 20200422
  3. PREDNISONE ACETATE [Suspect]
     Active Substance: PREDNISONE ACETATE
     Indication: Prostate cancer metastatic
     Route: 048
     Dates: start: 20200330, end: 20200422
  4. CLOSTRIDIUM BUTYRICUM [Concomitant]
     Indication: Diarrhoea
     Route: 048
     Dates: start: 20200421, end: 20200422
  5. BACILLUS LICHENIFORMIS CAPSULE,LIVE [Concomitant]
     Indication: Diarrhoea
     Route: 048
     Dates: start: 20200421, end: 20200422
  6. ERYTHROPOIETIN [Concomitant]
     Active Substance: ERYTHROPOIETIN
     Indication: Anaemia
     Dosage: 10000U
     Route: 058
     Dates: start: 20200422, end: 20200422
  7. ESTAZOLAM [Concomitant]
     Active Substance: ESTAZOLAM
     Indication: Product used for unknown indication
     Route: 048
  8. PHOSPHOLIPID [Concomitant]
     Active Substance: PHOSPHOLIPID
     Indication: Liver injury
     Route: 042
     Dates: start: 20200423
  9. CEFTAZIDIME [Concomitant]
     Active Substance: CEFTAZIDIME
     Indication: Upper respiratory tract infection
     Route: 042
     Dates: start: 20200423
  10. LEVOFLOXACIN [Concomitant]
     Active Substance: LEVOFLOXACIN
     Indication: Upper respiratory tract infection
     Route: 042
     Dates: start: 20200423
  11. MEROPENEM [Concomitant]
     Active Substance: MEROPENEM
     Indication: Lower respiratory tract infection
     Route: 042
     Dates: start: 20200424
  12. MEROPENEM [Concomitant]
     Active Substance: MEROPENEM
     Route: 042
     Dates: start: 20200425
  13. MEROPENEM [Concomitant]
     Active Substance: MEROPENEM
     Route: 042
     Dates: start: 20200430
  14. BROMHEXINE HYDROCHLORIDE [Concomitant]
     Active Substance: BROMHEXINE HYDROCHLORIDE
     Indication: Lower respiratory tract infection
     Route: 042
  15. POTASSIUM CHLORIDE [Concomitant]
     Active Substance: POTASSIUM CHLORIDE
     Indication: Hypokalaemia
     Route: 042
     Dates: start: 20200424
  16. POTASSIUM CHLORIDE [Concomitant]
     Active Substance: POTASSIUM CHLORIDE
     Route: 042
  17. POTASSIUM CHLORIDE [Concomitant]
     Active Substance: POTASSIUM CHLORIDE
     Route: 042
     Dates: start: 20200426, end: 20200430
  18. CALCIUM CHLORIDE\POTASSIUM CHLORIDE\SODIUM CHLORIDE\SODIUM LACTATE [Concomitant]
     Active Substance: CALCIUM CHLORIDE\POTASSIUM CHLORIDE\SODIUM CHLORIDE\SODIUM LACTATE
     Indication: Lower respiratory tract infection
     Route: 042
     Dates: start: 20200424, end: 20200430
  19. DIETARY SUPPLEMENT\HERBALS [Concomitant]
     Active Substance: DIETARY SUPPLEMENT\HERBALS
     Indication: Lower respiratory tract infection
     Route: 042
     Dates: start: 20200424, end: 20200430
  20. CHLORHEXIDINE GLUCONATE [Concomitant]
     Active Substance: CHLORHEXIDINE GLUCONATE
     Indication: Lower respiratory tract infection
  21. TEICOPLANIN [Concomitant]
     Active Substance: TEICOPLANIN
     Indication: Lower respiratory tract infection
     Route: 042
     Dates: start: 20200425
  22. TEICOPLANIN [Concomitant]
     Active Substance: TEICOPLANIN
     Route: 042
     Dates: start: 20200426, end: 20200429
  23. VITAMIN B6 [Concomitant]
     Active Substance: PYRIDOXINE HYDROCHLORIDE
     Indication: Lower respiratory tract infection
     Route: 042
     Dates: start: 20200424, end: 20200430
  24. CEFACLOR [Concomitant]
     Active Substance: CEFACLOR
     Indication: Lower respiratory tract infection
     Dates: start: 20200501, end: 20200505
  25. POTASSIUM CHLORIDE [Concomitant]
     Active Substance: POTASSIUM CHLORIDE
     Indication: Hypokalaemia
     Route: 065

REACTIONS (1)
  - Agranulocytosis [Recovered/Resolved]

NARRATIVE: CASE EVENT DATE: 20200423
